FAERS Safety Report 7532869-6 (Version None)
Quarter: 2011Q2

REPORT INFORMATION
  Report Type: 
  Country: None (occurrence: None)
  Receive Date: 20110608
  Receipt Date: 20110602
  Transmission Date: 20111010
  Serious: Yes (Death, Hospitalization, Other)
  Sender: FDA-Public Use
  Company Number: FR-PFIZER INC-2010098279

PATIENT
  Age: 58 Year
  Sex: Male

DRUGS (9)
  1. ROCEPHIN [Suspect]
     Dosage: UNK
     Dates: start: 20100426, end: 20100504
  2. CANCIDAS [Suspect]
     Dosage: UNK
     Route: 041
     Dates: start: 20100419, end: 20100513
  3. ACETAMINOPHEN [Suspect]
     Dosage: UNK
     Route: 041
     Dates: start: 20100401, end: 20100506
  4. TEGELINE [Suspect]
     Dosage: UNK
     Dates: start: 20100420, end: 20100424
  5. VANCOMYCIN HCL [Suspect]
     Dosage: UNK
     Route: 041
     Dates: start: 20100418, end: 20100512
  6. ZOVIRAX [Suspect]
     Dosage: UNK
     Dates: start: 20100419, end: 20100424
  7. PIPERACILLIN AND TAZOBACTAM [Suspect]
     Dosage: UNK
     Route: 042
     Dates: start: 20100419, end: 20100424
  8. SOLU-MEDROL [Suspect]
     Dosage: UNK
     Dates: start: 20100420, end: 20100425
  9. NEXIUM [Suspect]
     Dosage: UNK
     Route: 041
     Dates: start: 20100419

REACTIONS (5)
  - CONDITION AGGRAVATED [None]
  - GENERAL PHYSICAL HEALTH DETERIORATION [None]
  - BRONCHOPULMONARY ASPERGILLOSIS [None]
  - SEPSIS [None]
  - STEVENS-JOHNSON SYNDROME [None]
